FAERS Safety Report 8402188-4 (Version None)
Quarter: 2012Q2

REPORT INFORMATION
  Report Type: 
  Country: None (occurrence: None)
  Receive Date: 20120525
  Receipt Date: 20120517
  Transmission Date: 20120825
  Serious: Yes (Disabling)
  Sender: FDA-Public Use
  Company Number: 2012SP018713

PATIENT
  Age: 68 Year
  Sex: Male
  Weight: 61 kg

DRUGS (7)
  1. GLYBURIDE [Concomitant]
  2. PEG-INTRON [Suspect]
     Indication: HEPATITIS C
     Dosage: 1.5 MCG/KG, QW, SC
     Route: 058
     Dates: start: 20120202
  3. ACTOS [Concomitant]
  4. EPADEL-S [Concomitant]
  5. REBETOL [Suspect]
     Indication: HEPATITIS C
     Dosage: 800;600 MG, QD, PO
     Route: 048
     Dates: start: 20120301
  6. REBETOL [Suspect]
     Indication: HEPATITIS C
     Dosage: 800;600 MG, QD, PO
     Route: 048
     Dates: start: 20120202, end: 20120229
  7. VOLTAREN [Concomitant]

REACTIONS (8)
  - FALL [None]
  - SKULL FRACTURED BASE [None]
  - BLOOD BILIRUBIN INCREASED [None]
  - CONTUSION [None]
  - EAR CANAL INJURY [None]
  - EAR HAEMORRHAGE [None]
  - ANAEMIA [None]
  - HEARING IMPAIRED [None]
